FAERS Safety Report 12877340 (Version 2)
Quarter: 2016Q4

REPORT INFORMATION
  Report Type: Report from Study
  Country: US (occurrence: US)
  Receive Date: 20161024
  Receipt Date: 20161201
  Transmission Date: 20170207
  Serious: No
  Sender: FDA-Public Use
  Company Number: US-THERATECHNOLOGIES, INC.-TH-2016-00130

PATIENT
  Age: 52 Year
  Sex: Male

DRUGS (2)
  1. EGRIFTA [Suspect]
     Active Substance: TESAMORELIN
     Dosage: NOT SPECIFIED
     Dates: start: 20161012
  2. EGRIFTA [Suspect]
     Active Substance: TESAMORELIN
     Dosage: UNKNOWN
     Dates: start: 201210, end: 20161006

REACTIONS (2)
  - Muscle spasms [Not Recovered/Not Resolved]
  - Insomnia [Not Recovered/Not Resolved]

NARRATIVE: CASE EVENT DATE: 201210
